FAERS Safety Report 9173623 (Version 1)
Quarter: 2013Q1

REPORT INFORMATION
  Report Type: Report from Study
  Country: US (occurrence: US)
  Receive Date: 20130320
  Receipt Date: 20130320
  Transmission Date: 20140127
  Serious: Yes (Hospitalization)
  Sender: FDA-Public Use
  Company Number: US-UCBSA-080921

PATIENT
  Age: 21 Year
  Sex: Female
  Weight: 52.2 kg

DRUGS (12)
  1. CIMZIA [Suspect]
     Indication: CROHN^S DISEASE
     Dosage: 400MG
     Route: 058
     Dates: start: 20121109
  2. ADDERALL XR [Concomitant]
     Dosage: 15MG DAILY
     Route: 048
  3. ALIGN ORAL [Concomitant]
     Route: 048
  4. WELLBUTRIN-XL [Concomitant]
     Dosage: 300MG EXTENDED RELEASE TABLET
     Route: 048
  5. CALCIUM [Concomitant]
     Dosage: 600MG
     Route: 048
  6. DIFLUCAN [Concomitant]
     Dosage: 150MG
     Route: 048
  7. FOLIC ACID [Concomitant]
     Dosage: 1MG
     Route: 048
  8. MINOCIN [Concomitant]
     Dosage: 50MG CAPSULE DAILY
     Route: 048
  9. SPRINTEC (28) ORAL [Concomitant]
     Route: 048
  10. ZOFRAN [Concomitant]
     Dosage: 4MG
     Route: 048
  11. ULTRAM [Concomitant]
     Dosage: 50MG
     Route: 048
  12. METHOTREXATE [Concomitant]
     Indication: CROHN^S DISEASE
     Dosage: FIVE TABLET IN SEVEN DAYS
     Route: 048
     Dates: start: 20120910

REACTIONS (1)
  - Gastroenteritis viral [Recovered/Resolved]
